FAERS Safety Report 21625492 (Version 1)
Quarter: 2022Q4

REPORT INFORMATION
  Report Type: Spontaneous
  Country: US (occurrence: US)
  Receive Date: 20221122
  Receipt Date: 20221122
  Transmission Date: 20230112
  Serious: No
  Sender: FDA-Public Use
  Company Number: US-GSKCCFUS-Case-01561472_AE-88295

PATIENT
  Sex: Male

DRUGS (1)
  1. FLOVENT DISKUS [Suspect]
     Active Substance: FLUTICASONE PROPIONATE
     Indication: Respiratory syncytial virus infection
     Dosage: UNK

REACTIONS (2)
  - Wrong technique in device usage process [Recovered/Resolved]
  - Product use in unapproved indication [Unknown]
